FAERS Safety Report 6945365-1 (Version None)
Quarter: 2010Q3

REPORT INFORMATION
  Report Type: 
  Country: None (occurrence: None)
  Receive Date: 20100827
  Receipt Date: 20100816
  Transmission Date: 20110219
  Serious: No
  Sender: FDA-Public Use
  Company Number: US-JNJFOC-20100806094

PATIENT
  Sex: Female
  Weight: 96.16 kg

DRUGS (15)
  1. FENTANYL CITRATE [Suspect]
     Indication: SPINAL COLUMN STENOSIS
     Route: 062
  2. FENTANYL CITRATE [Suspect]
     Route: 062
  3. LORTAB [Concomitant]
     Indication: PAIN
     Route: 048
  4. AVANDIA [Concomitant]
     Indication: DIABETES MELLITUS
     Route: 048
  5. CYMBALTA [Concomitant]
     Indication: DEPRESSION
     Route: 048
  6. ZETIA [Concomitant]
     Route: 048
  7. ZYPREXA [Concomitant]
     Route: 048
  8. DIOVAN [Concomitant]
     Indication: HYPERTENSION
     Route: 048
  9. METOPROLOL TARTRATE [Concomitant]
     Indication: HYPERTENSION
     Route: 048
  10. CRESTOR [Concomitant]
     Indication: BLOOD CHOLESTEROL
     Route: 048
  11. DILTIAZEM [Concomitant]
     Indication: HYPERTENSION
     Route: 048
  12. HYDRA-ZIDE [Concomitant]
     Indication: OEDEMA
     Route: 048
  13. LORAZEPAM [Concomitant]
     Indication: TENSION
     Route: 048
  14. RESTORIL [Concomitant]
     Indication: SLEEP DISORDER
     Route: 048
  15. DILANTIN [Concomitant]
     Indication: NEUROPATHY PERIPHERAL
     Route: 048

REACTIONS (2)
  - HYPERTENSION [None]
  - WRONG TECHNIQUE IN DRUG USAGE PROCESS [None]
